FAERS Safety Report 12200472 (Version 1)
Quarter: 2016Q1

REPORT INFORMATION
  Report Type: Spontaneous
  Country: US (occurrence: US)
  Receive Date: 20160322
  Receipt Date: 20160322
  Transmission Date: 20160526
  Serious: Yes (Hospitalization)
  Sender: FDA-Public Use
  Company Number: US-ABBVIE-16P-163-1584538-00

PATIENT
  Age: 76 Year
  Sex: Female
  Weight: 54.48 kg

DRUGS (12)
  1. LEVOTHYROXINE. [Suspect]
     Active Substance: LEVOTHYROXINE
     Indication: HYPOTHYROIDISM
     Route: 048
  2. JANTOVEN [Suspect]
     Active Substance: WARFARIN SODIUM
     Indication: PRODUCT USED FOR UNKNOWN INDICATION
     Dosage: 1.5 TABLET MONDAY, WEDNESDAY, FRIDAY, AND SUNDAY
     Route: 048
     Dates: end: 20150310
  3. ZYRTEC [Concomitant]
     Active Substance: CETIRIZINE HYDROCHLORIDE
     Indication: PRODUCT USED FOR UNKNOWN INDICATION
     Route: 048
  4. VISINE OPH [Concomitant]
     Indication: PRODUCT USED FOR UNKNOWN INDICATION
     Dosage: ONE DROP INTO BOTH EYES TWICE DAILY
     Route: 047
  5. CALCIUM + D [Concomitant]
     Active Substance: CALCIUM\VITAMIN D
     Indication: PRODUCT USED FOR UNKNOWN INDICATION
     Dosage: 500/500-400MG
     Route: 048
  6. AMIODARONE [Suspect]
     Active Substance: AMIODARONE
     Indication: PRODUCT USED FOR UNKNOWN INDICATION
     Dosage: AT 4PM
     Route: 048
  7. VALSARTAN AND HYDROCHLOROTHIAZIDE [Suspect]
     Active Substance: HYDROCHLOROTHIAZIDE\VALSARTAN
     Indication: PRODUCT USED FOR UNKNOWN INDICATION
     Dosage: 320/12.5
     Route: 065
     Dates: end: 20150310
  8. ATENOLOL. [Suspect]
     Active Substance: ATENOLOL
     Indication: PRODUCT USED FOR UNKNOWN INDICATION
     Route: 048
  9. ESTRACE [Concomitant]
     Active Substance: ESTRADIOL
     Indication: PRODUCT USED FOR UNKNOWN INDICATION
     Dosage: AS NEEDED
     Route: 067
  10. ASCORBIC ACID. [Concomitant]
     Active Substance: ASCORBIC ACID
     Indication: PRODUCT USED FOR UNKNOWN INDICATION
     Route: 048
  11. PREVNAR 13 [Suspect]
     Active Substance: PNEUMOCOCCAL 13-VALENT CONJUGATE VACCINE
     Indication: PNEUMOCOCCAL IMMUNISATION
     Route: 030
     Dates: start: 20150305, end: 20150305
  12. JANTOVEN [Suspect]
     Active Substance: WARFARIN SODIUM
     Dosage: ONE TABLET BY MOUTH EVERY TUE, THUR, AND SAT.
     Route: 048

REACTIONS (22)
  - International normalised ratio increased [Recovering/Resolving]
  - Ischaemic hepatitis [Recovered/Resolved]
  - Protein total decreased [Unknown]
  - Diarrhoea [Recovered/Resolved]
  - Adverse event following immunisation [Recovered/Resolved]
  - Abdominal discomfort [Recovered/Resolved]
  - Flatulence [Unknown]
  - Abdominal pain [Recovering/Resolving]
  - Bradycardia [Unknown]
  - Hepatitis viral [Recovered/Resolved]
  - Mean cell haemoglobin increased [Unknown]
  - Cough [Recovered/Resolved]
  - Dizziness [Unknown]
  - Syncope [Not Recovered/Not Resolved]
  - Nausea [Recovered/Resolved]
  - Decreased appetite [Recovered/Resolved]
  - Lymphocyte percentage decreased [Unknown]
  - Blood potassium decreased [Recovered/Resolved]
  - Drug-induced liver injury [Recovered/Resolved]
  - Platelet count decreased [Unknown]
  - Hepatitis acute [Recovered/Resolved]
  - Vomiting [Recovered/Resolved]

NARRATIVE: CASE EVENT DATE: 201502
